FAERS Safety Report 14979103 (Version 1)
Quarter: 2018Q2

REPORT INFORMATION
  Report Type: Spontaneous
  Country: SE (occurrence: ZA)
  Receive Date: 20180606
  Receipt Date: 20180606
  Transmission Date: 20180711
  Serious: Yes (Hospitalization, Other)
  Sender: FDA-Public Use
  Company Number: SE-B.I. PHARMACEUTICALS,INC./RIDGEFIELD-2018-12-001875

PATIENT
  Age: 74 Year
  Sex: Female

DRUGS (12)
  1. FOXAIR [Suspect]
     Active Substance: FLUTICASONE PROPIONATE\SALMETEROL XINAFOATE
     Indication: ASTHMA
     Dosage: UNK
     Route: 048
  2. FERRIMED [Suspect]
     Active Substance: CYANOCOBALAMIN\IRON POLYMALTOSE\PYRIDOXINE
     Indication: BLOOD IRON ABNORMAL
     Dosage: UNK
     Route: 048
  3. ZOPIVANE [Suspect]
     Active Substance: ZOPICLONE
     Indication: SLEEP DISORDER
     Dosage: 7.5 MG, UNK
     Route: 048
  4. TRUSTAN [Suspect]
     Active Substance: ESOMEPRAZOLE
     Indication: ULCER
     Dosage: 20 MG, UNK
     Route: 048
  5. MYLAN FUROSEMIDE [Suspect]
     Active Substance: FUROSEMIDE
     Indication: DIURETIC THERAPY
     Dosage: 40 MG, UNK
     Route: 048
  6. PREXUM PLUS [Suspect]
     Active Substance: PERINDOPRIL ERBUMINE
     Indication: HYPERTENSION
     Dosage: 2.5 MG, UNK
     Route: 048
  7. SPIRACTIN (SPIRONOLACTONE) [Suspect]
     Active Substance: SPIRONOLACTONE
     Indication: HYPERTENSION
     Dosage: 25 MG, UNK
     Route: 048
  8. SPIRIVA [Suspect]
     Active Substance: TIOTROPIUM BROMIDE MONOHYDRATE
     Indication: ASTHMA
     Dosage: 18 MCG, UNK
     Route: 055
  9. PLENISH-K [Suspect]
     Active Substance: POTASSIUM CHLORIDE
     Indication: BLOOD POTASSIUM ABNORMAL
     Dosage: 600 MG, UNK
     Route: 048
  10. CARLOC [Suspect]
     Active Substance: CARVEDILOL
     Indication: HYPERTENSION
     Dosage: 6.25 MG, UNK
     Route: 048
  11. CARDURAXL [Suspect]
     Active Substance: DOXAZOSIN MESYLATE
     Indication: PRODUCT USED FOR UNKNOWN INDICATION
     Dosage: 8 MG, UNK
     Route: 048
  12. TRAMACET [Suspect]
     Active Substance: ACETAMINOPHEN\TRAMADOL
     Indication: DEPRESSION
     Dosage: UNK
     Route: 048

REACTIONS (1)
  - Renal failure [Unknown]

NARRATIVE: CASE EVENT DATE: 2018
